FAERS Safety Report 8747633 (Version 2)
Quarter: 2012Q4

REPORT INFORMATION
  Report Type: 
  Country: US (occurrence: US)
  Receive Date: 20120827
  Receipt Date: 20121008
  Transmission Date: 20130627
  Serious: No
  Sender: FDA-Public Use
  Company Number: US-ASTRAZENECA-2012SE60056

PATIENT
  Age: 58 Year
  Sex: Male
  Weight: 91.6 kg

DRUGS (5)
  1. CRESTOR [Suspect]
     Route: 048
  2. METOPROLOL TARTRATE [Concomitant]
     Indication: BLOOD PRESSURE ABNORMAL
  3. HYDROCHLORIDE [Concomitant]
  4. GLUCODIN [Concomitant]
  5. EYE DROP [Concomitant]

REACTIONS (2)
  - Glaucoma [Unknown]
  - Muscle spasms [Not Recovered/Not Resolved]
